FAERS Safety Report 20995920 (Version 1)
Quarter: 2022Q2

REPORT INFORMATION
  Report Type: Spontaneous
  Country: US (occurrence: US)
  Receive Date: 20220623
  Receipt Date: 20220623
  Transmission Date: 20220720
  Serious: Yes (Other)
  Sender: FDA-Public Use
  Company Number: US-PURDUE-USA-2020-0216096

PATIENT
  Sex: Male

DRUGS (1)
  1. HYDROCODONE BITARTRATE AND ACETAMINOPHEN [Suspect]
     Active Substance: ACETAMINOPHEN\HYDROCODONE BITARTRATE
     Indication: Pain
     Dosage: 7.5 MG/3.25MG, TID (ABOUT 6-8 HRD APART)
     Route: 048

REACTIONS (3)
  - Drug dependence [Unknown]
  - Illness [Unknown]
  - Drug withdrawal syndrome [Unknown]
